FAERS Safety Report 20033744 (Version 1)
Quarter: 2021Q4

REPORT INFORMATION
  Report Type: Spontaneous
  Country: KR (occurrence: KR)
  Receive Date: 20211104
  Receipt Date: 20211104
  Transmission Date: 20220303
  Serious: Yes (Other)
  Sender: FDA-Public Use
  Company Number: KR-KYOWAKIRIN-2021AKK018299

PATIENT
  Age: 72 Year
  Sex: Female

DRUGS (67)
  1. FILGRASTIM [Suspect]
     Active Substance: FILGRASTIM
     Indication: Product used for unknown indication
     Dosage: UNK
     Route: 042
     Dates: start: 20120108, end: 20120118
  2. FILGRASTIM [Suspect]
     Active Substance: FILGRASTIM
     Dosage: 300 UG
     Route: 042
     Dates: start: 20120206, end: 20120206
  3. FILGRASTIM [Suspect]
     Active Substance: FILGRASTIM
     Dosage: 300 UG
     Route: 042
     Dates: start: 20120209, end: 20120209
  4. DECITABINE [Suspect]
     Active Substance: DECITABINE
     Indication: Product used for unknown indication
     Dosage: 15 MG/M2
     Route: 042
     Dates: start: 20110718, end: 20110722
  5. DECITABINE [Suspect]
     Active Substance: DECITABINE
     Dosage: 15 MG/M2
     Route: 042
     Dates: start: 20110822, end: 20110826
  6. DECITABINE [Suspect]
     Active Substance: DECITABINE
     Dosage: 15 MG/M2
     Route: 042
     Dates: start: 20110919, end: 20110923
  7. DECITABINE [Suspect]
     Active Substance: DECITABINE
     Dosage: 15 MG/M2
     Route: 042
     Dates: start: 20111017, end: 20111021
  8. DECITABINE [Suspect]
     Active Substance: DECITABINE
     Dosage: 20 MG/M2
     Route: 042
     Dates: start: 20110523, end: 20110527
  9. DECITABINE [Suspect]
     Active Substance: DECITABINE
     Dosage: 20 MG/M2
     Route: 042
     Dates: start: 20110620, end: 20110624
  10. DECITABINE [Suspect]
     Active Substance: DECITABINE
     Dosage: 20 MG/M2
     Route: 042
     Dates: start: 20111114, end: 20111118
  11. DECITABINE [Suspect]
     Active Substance: DECITABINE
     Dosage: 20 MG/M2
     Route: 042
     Dates: start: 20111212, end: 20111216
  12. DECITABINE [Suspect]
     Active Substance: DECITABINE
     Dosage: 20 MG/M2
     Route: 042
     Dates: start: 20120109, end: 20120113
  13. DECITABINE [Suspect]
     Active Substance: DECITABINE
     Dosage: 20 MG/M2
     Route: 042
     Dates: start: 20120206, end: 20120210
  14. DECITABINE [Suspect]
     Active Substance: DECITABINE
     Dosage: 20 MG/M2
     Route: 042
     Dates: start: 20120310, end: 20120314
  15. DECITABINE [Suspect]
     Active Substance: DECITABINE
     Dosage: 20 MG/M2
     Route: 042
     Dates: start: 20120416, end: 20120420
  16. DECITABINE [Suspect]
     Active Substance: DECITABINE
     Dosage: 20 MG/M2
     Route: 042
     Dates: start: 20120528, end: 20120601
  17. DECITABINE [Suspect]
     Active Substance: DECITABINE
     Dosage: 20 MG/M2
     Route: 042
     Dates: start: 20120702, end: 20120706
  18. DECITABINE [Suspect]
     Active Substance: DECITABINE
     Dosage: 20 MG/M2
     Route: 042
     Dates: start: 20120808, end: 20120812
  19. DECITABINE [Suspect]
     Active Substance: DECITABINE
     Dosage: 20 MG/M2
     Route: 042
     Dates: start: 20120910, end: 20120914
  20. DECITABINE [Suspect]
     Active Substance: DECITABINE
     Dosage: 20 MG/M2
     Route: 042
     Dates: start: 20121015, end: 20121019
  21. DECITABINE [Suspect]
     Active Substance: DECITABINE
     Dosage: 20 MG/M2
     Route: 042
     Dates: start: 20121119, end: 20121123
  22. ACYCLOVIR [Concomitant]
     Active Substance: ACYCLOVIR
     Indication: Product used for unknown indication
     Dosage: 400 MG
     Route: 048
     Dates: start: 20120204, end: 20130317
  23. ACYCLOVIR [Concomitant]
     Active Substance: ACYCLOVIR
     Dosage: 400 MG
     Route: 048
     Dates: start: 20121119, end: 20121231
  24. CEFCAPENE [Concomitant]
     Active Substance: CEFCAPENE
     Indication: Product used for unknown indication
     Dosage: 300 MG
     Route: 048
     Dates: start: 20120206, end: 20120215
  25. CEFIXIME [Concomitant]
     Active Substance: CEFIXIME
     Indication: Product used for unknown indication
     Dosage: 200 MG
     Route: 048
     Dates: start: 20121119, end: 20121231
  26. CIPROFLOXACIN [Concomitant]
     Active Substance: CIPROFLOXACIN
     Indication: Product used for unknown indication
     Dosage: 500 MG
     Route: 048
     Dates: start: 20110620, end: 20110717
  27. CIPROFLOXACIN [Concomitant]
     Active Substance: CIPROFLOXACIN
     Dosage: 500 MG
     Route: 048
     Dates: start: 20110720, end: 20110821
  28. CIPROFLOXACIN [Concomitant]
     Active Substance: CIPROFLOXACIN
     Dosage: 500 MG
     Route: 048
     Dates: start: 20110908, end: 20111016
  29. CIPROFLOXACIN [Concomitant]
     Active Substance: CIPROFLOXACIN
     Dosage: 1000 MG
     Route: 048
     Dates: start: 20120416, end: 20120527
  30. CIPROFLOXACIN [Concomitant]
     Active Substance: CIPROFLOXACIN
     Dosage: 1000 MG
     Route: 048
     Dates: start: 20120808, end: 20120909
  31. CIPROFLOXACIN [Concomitant]
     Active Substance: CIPROFLOXACIN
     Dosage: 1000 MG
     Route: 048
     Dates: start: 20120910, end: 20120922
  32. CIPROFLOXACIN [Concomitant]
     Active Substance: CIPROFLOXACIN
     Dosage: 1000 MG
     Route: 048
     Dates: start: 20121015, end: 20121116
  33. CIPROFLOXACIN [Concomitant]
     Active Substance: CIPROFLOXACIN
     Dosage: 1000 MG
     Route: 048
     Dates: start: 20121119, end: 20121231
  34. DARBEPOETIN ALFA [Concomitant]
     Active Substance: DARBEPOETIN ALFA
     Indication: Product used for unknown indication
     Dosage: 120 UG
     Route: 065
     Dates: start: 20120206, end: 20120206
  35. FLUCONAZOLE [Concomitant]
     Active Substance: FLUCONAZOLE
     Indication: Product used for unknown indication
     Dosage: 5 ML
     Route: 048
     Dates: start: 20110720, end: 20110821
  36. FLUCONAZOLE [Concomitant]
     Active Substance: FLUCONAZOLE
     Dosage: 5 ML
     Route: 048
     Dates: start: 20110826, end: 20110918
  37. FLUCONAZOLE [Concomitant]
     Active Substance: FLUCONAZOLE
     Dosage: 5 ML
     Route: 048
     Dates: start: 20110918, end: 20111016
  38. FLUCONAZOLE [Concomitant]
     Active Substance: FLUCONAZOLE
     Dosage: 5 ML
     Route: 048
     Dates: start: 20111021, end: 20111113
  39. FLUCONAZOLE [Concomitant]
     Active Substance: FLUCONAZOLE
     Dosage: 5 ML
     Route: 048
     Dates: start: 20111116, end: 20111211
  40. FLUCONAZOLE [Concomitant]
     Active Substance: FLUCONAZOLE
     Dosage: 5 ML
     Route: 048
     Dates: start: 20111214, end: 20120108
  41. FLUCONAZOLE [Concomitant]
     Active Substance: FLUCONAZOLE
     Dosage: 5 ML
     Route: 048
     Dates: start: 20120109, end: 20120205
  42. ITRACONAZOLE [Concomitant]
     Active Substance: ITRACONAZOLE
     Indication: Product used for unknown indication
     Dosage: 40 ML
     Route: 048
     Dates: start: 20110521, end: 20110607
  43. ITRACONAZOLE [Concomitant]
     Active Substance: ITRACONAZOLE
     Dosage: 40 ML
     Route: 048
     Dates: start: 20120206, end: 20120309
  44. ITRACONAZOLE [Concomitant]
     Active Substance: ITRACONAZOLE
     Dosage: 40 ML
     Route: 048
     Dates: start: 20120310, end: 20120415
  45. ITRACONAZOLE [Concomitant]
     Active Substance: ITRACONAZOLE
     Dosage: 40 ML
     Route: 048
     Dates: start: 20120416, end: 20120527
  46. ITRACONAZOLE [Concomitant]
     Active Substance: ITRACONAZOLE
     Dosage: 40 ML
     Route: 048
     Dates: start: 20120528, end: 20120701
  47. ITRACONAZOLE [Concomitant]
     Active Substance: ITRACONAZOLE
     Dosage: 40 ML
     Route: 048
     Dates: start: 20120702, end: 20120807
  48. ITRACONAZOLE [Concomitant]
     Active Substance: ITRACONAZOLE
     Dosage: 40 ML
     Route: 048
     Dates: start: 20120808, end: 20120909
  49. ITRACONAZOLE [Concomitant]
     Active Substance: ITRACONAZOLE
     Dosage: 40 ML
     Route: 048
     Dates: start: 20120910, end: 20121014
  50. ITRACONAZOLE [Concomitant]
     Active Substance: ITRACONAZOLE
     Dosage: 40 ML
     Route: 048
     Dates: start: 20121015, end: 20121116
  51. ITRACONAZOLE [Concomitant]
     Active Substance: ITRACONAZOLE
     Dosage: 40 ML
     Route: 048
     Dates: start: 20121119, end: 20121231
  52. RANITIDINE [Concomitant]
     Active Substance: RANITIDINE
     Indication: Product used for unknown indication
     Dosage: 300 MG
     Route: 065
     Dates: start: 20110907
  53. SULFAMETHOXAZOLE AND TRIMETHOPRIM [Concomitant]
     Active Substance: SULFAMETHOXAZOLE\TRIMETHOPRIM
     Indication: Product used for unknown indication
     Dosage: 4 MG
     Route: 048
     Dates: start: 20110720, end: 20110821
  54. SULFAMETHOXAZOLE AND TRIMETHOPRIM [Concomitant]
     Active Substance: SULFAMETHOXAZOLE\TRIMETHOPRIM
     Dosage: 4 MG
     Route: 048
     Dates: start: 20110826, end: 20110918
  55. SULFAMETHOXAZOLE AND TRIMETHOPRIM [Concomitant]
     Active Substance: SULFAMETHOXAZOLE\TRIMETHOPRIM
     Dosage: 4 DF
     Route: 048
     Dates: start: 20110620, end: 20110717
  56. SULFAMETHOXAZOLE AND TRIMETHOPRIM [Concomitant]
     Active Substance: SULFAMETHOXAZOLE\TRIMETHOPRIM
     Dosage: 4 DF
     Route: 048
     Dates: start: 20110921, end: 20111016
  57. SULFAMETHOXAZOLE AND TRIMETHOPRIM [Concomitant]
     Active Substance: SULFAMETHOXAZOLE\TRIMETHOPRIM
     Dosage: 4 DF
     Route: 048
     Dates: start: 20111021, end: 20111113
  58. SULFAMETHOXAZOLE AND TRIMETHOPRIM [Concomitant]
     Active Substance: SULFAMETHOXAZOLE\TRIMETHOPRIM
     Dosage: 4 DF
     Route: 048
     Dates: start: 20111118, end: 20111211
  59. SULFAMETHOXAZOLE AND TRIMETHOPRIM [Concomitant]
     Active Substance: SULFAMETHOXAZOLE\TRIMETHOPRIM
     Dosage: 4 DF
     Route: 048
     Dates: start: 20111216, end: 20120108
  60. SULFAMETHOXAZOLE AND TRIMETHOPRIM [Concomitant]
     Active Substance: SULFAMETHOXAZOLE\TRIMETHOPRIM
     Dosage: 4 DF
     Route: 048
     Dates: start: 20120109, end: 20120205
  61. SULFAMETHOXAZOLE AND TRIMETHOPRIM [Concomitant]
     Active Substance: SULFAMETHOXAZOLE\TRIMETHOPRIM
     Dosage: 4 DF
     Route: 048
     Dates: start: 20120416, end: 20120527
  62. SULFAMETHOXAZOLE AND TRIMETHOPRIM [Concomitant]
     Active Substance: SULFAMETHOXAZOLE\TRIMETHOPRIM
     Dosage: 4 DF
     Route: 048
     Dates: start: 20120528, end: 20120701
  63. SULFAMETHOXAZOLE AND TRIMETHOPRIM [Concomitant]
     Active Substance: SULFAMETHOXAZOLE\TRIMETHOPRIM
     Dosage: 4 DF
     Route: 048
     Dates: start: 20120702, end: 20120807
  64. SULFAMETHOXAZOLE AND TRIMETHOPRIM [Concomitant]
     Active Substance: SULFAMETHOXAZOLE\TRIMETHOPRIM
     Dosage: 4 DF
     Route: 048
     Dates: start: 20120808, end: 20120909
  65. SULFAMETHOXAZOLE AND TRIMETHOPRIM [Concomitant]
     Active Substance: SULFAMETHOXAZOLE\TRIMETHOPRIM
     Dosage: 4 DF
     Route: 048
     Dates: start: 20120910, end: 20121014
  66. SULFAMETHOXAZOLE AND TRIMETHOPRIM [Concomitant]
     Active Substance: SULFAMETHOXAZOLE\TRIMETHOPRIM
     Dosage: 4 DF
     Route: 048
     Dates: start: 20121015, end: 20121116
  67. SULFAMETHOXAZOLE AND TRIMETHOPRIM [Concomitant]
     Active Substance: SULFAMETHOXAZOLE\TRIMETHOPRIM
     Dosage: 4 DF
     Route: 048
     Dates: start: 20121119, end: 20121231

REACTIONS (1)
  - Nephritis [Recovered/Resolved]

NARRATIVE: CASE EVENT DATE: 20121210
